FAERS Safety Report 6819432-7 (Version None)
Quarter: 2010Q3

REPORT INFORMATION
  Report Type: 
  Country: None (occurrence: None)
  Receive Date: 20100707
  Receipt Date: 20100625
  Transmission Date: 20110219
  Serious: Yes (Other)
  Sender: FDA-Public Use
  Company Number: US-PFIZER INC-2010080125

PATIENT
  Sex: Male

DRUGS (2)
  1. VIAGRA [Suspect]
     Dosage: 50 MG, UNK
  2. NOVOCAIN [Interacting]
     Indication: DENTAL CARE
     Dosage: UNK
     Dates: start: 20100625

REACTIONS (2)
  - DRUG INTERACTION [None]
  - VISION BLURRED [None]
